FAERS Safety Report 4378296-4 (Version None)
Quarter: 2004Q2

REPORT INFORMATION
  Report Type: 
  Country: None (occurrence: None)
  Receive Date: 20040609
  Receipt Date: 20040527
  Transmission Date: 20050107
  Serious: Yes (Hospitalization)
  Sender: FDA-Public Use
  Company Number: US-JNJFOC-20040506853

PATIENT
  Age: 53 Year
  Sex: Female

DRUGS (4)
  1. DURAGESIC [Suspect]
     Indication: PAIN
     Dosage: 75 UG/HR, 1 IN 48 HOUR, TRANSDERMAL
     Route: 062
     Dates: start: 20010101, end: 20030901
  2. KLONOPIN [Concomitant]
  3. LAMICTIL (LAMOTRIGINE) [Concomitant]
  4. THYROID TAB [Concomitant]

REACTIONS (4)
  - DEHYDRATION [None]
  - DENTAL CARIES [None]
  - IMPAIRED DRIVING ABILITY [None]
  - TOOTH FRACTURE [None]
